FAERS Safety Report 5753098-2 (Version None)
Quarter: 2008Q2

REPORT INFORMATION
  Report Type: 
  Country: None (occurrence: None)
  Receive Date: 20080527
  Receipt Date: 20080513
  Transmission Date: 20081010
  Serious: Yes (Other)
  Sender: FDA-Public Use
  Company Number: 2008-01630

PATIENT
  Age: 17 Year
  Sex: Female
  Weight: 60.6 kg

DRUGS (5)
  1. VELCADE [Suspect]
     Indication: HODGKIN'S DISEASE
     Dosage: 1.2 MG/M2, IV BOLUS
     Route: 040
     Dates: start: 20080428, end: 20080505
  2. NEUPOGEN [Suspect]
     Indication: HODGKIN'S DISEASE
     Dosage: 300 UG,
     Dates: start: 20080503
  3. IFOSFAMIDE [Suspect]
     Indication: HODGKIN'S DISEASE
     Dosage: 3000 MG/M2, INTRAVENOUS
     Route: 042
     Dates: start: 20080428, end: 20080502
  4. MESNEX [Suspect]
     Indication: HODGKIN'S DISEASE
     Dosage: 3000 MG/M2, INTRAVENOUS
     Route: 042
     Dates: start: 20080428, end: 20080503
  5. VINORELBINE [Suspect]
     Indication: HODGKIN'S DISEASE
     Dosage: 25 MG/M2, INTRAVENOUS
     Route: 042
     Dates: start: 20080428, end: 20080502

REACTIONS (7)
  - BACK PAIN [None]
  - HYPOALBUMINAEMIA [None]
  - INFECTION [None]
  - LYMPHOPENIA [None]
  - MUSCLE SPASMS [None]
  - NEURALGIA [None]
  - PAIN IN EXTREMITY [None]
